FAERS Safety Report 22205417 (Version 1)
Quarter: 2023Q2

REPORT INFORMATION
  Report Type: Report from Study
  Country: BR (occurrence: BR)
  Receive Date: 20230413
  Receipt Date: 20230413
  Transmission Date: 20230721
  Serious: Yes (Other)
  Sender: FDA-Public Use
  Company Number: BR-JNJFOC-20220809886

PATIENT
  Age: 41 Year
  Sex: Female
  Weight: 80 kg

DRUGS (2)
  1. INFLIXIMAB [Suspect]
     Active Substance: INFLIXIMAB
     Indication: Crohn^s disease
     Dosage: 4 BOTTLES IN 8 IN 8 WEEKS
     Route: 041
     Dates: start: 20140805, end: 202110
  2. REMICADE [Suspect]
     Active Substance: INFLIXIMAB
     Indication: Crohn^s disease
     Route: 041
     Dates: start: 20140805, end: 20220715

REACTIONS (4)
  - Mastitis [Not Recovered/Not Resolved]
  - Anal fistula [Unknown]
  - Diarrhoea [Unknown]
  - Therapeutic response decreased [Unknown]
